FAERS Safety Report 8154056-3 (Version None)
Quarter: 2012Q1

REPORT INFORMATION
  Report Type: 
  Country: None (occurrence: None)
  Receive Date: 20120221
  Receipt Date: 20120216
  Transmission Date: 20120608
  Serious: Yes (Other)
  Sender: FDA-Public Use
  Company Number: IT-BRISTOL-MYERS SQUIBB COMPANY-16405037

PATIENT

DRUGS (2)
  1. SPRYCEL [Suspect]
     Indication: CHRONIC MYELOID LEUKAEMIA
     Dosage: INTRRUPTED 27OCT2011
     Route: 048
     Dates: start: 20101027, end: 20110909
  2. MESALAMINE [Concomitant]
     Dates: start: 20111001, end: 20111115

REACTIONS (2)
  - RECTAL ULCER [None]
  - COLITIS [None]
